FAERS Safety Report 8919114 (Version 2)
Quarter: 2012Q4

REPORT INFORMATION
  Report Type: 
  Country: GB (occurrence: GB)
  Receive Date: 20121121
  Receipt Date: 20121211
  Transmission Date: 20130627
  Serious: Yes (Other)
  Sender: FDA-Public Use
  Company Number: GB-PURDUE-GBR-2012-0012150

PATIENT
  Age: 25 Year
  Sex: Female
  Weight: 66 kg

DRUGS (5)
  1. BUTRANS 20MG TRANSDERMAL PATCH [Suspect]
     Indication: ANALGESIC THERAPY
     Dosage: 40 mcg, q1h
     Route: 062
     Dates: start: 20120914, end: 20121105
  2. ESOMEPRAZOLE [Concomitant]
     Route: 065
  3. METOCLOPRAMIDE [Concomitant]
     Route: 065
  4. MICROGYNON                         /00022701/ [Concomitant]
     Route: 065
  5. ONDANSETRON [Concomitant]
     Route: 065

REACTIONS (4)
  - Application site burn [Not Recovered/Not Resolved]
  - Laceration [Not Recovered/Not Resolved]
  - Application site erythema [Not Recovered/Not Resolved]
  - Wound secretion [Not Recovered/Not Resolved]
